FAERS Safety Report 21825480 (Version 1)
Quarter: 2023Q1

REPORT INFORMATION
  Report Type: Spontaneous
  Country: US (occurrence: None)
  Receive Date: 20230105
  Receipt Date: 20230105
  Transmission Date: 20230418
  Serious: No
  Sender: FDA-Public Use
  Company Number: None

PATIENT
  Age: 15 Year
  Sex: Male
  Weight: 88.45 kg

DRUGS (1)
  1. HUMIRA [Suspect]
     Active Substance: ADALIMUMAB
     Indication: Hidradenitis
     Dosage: INJECT 40MG SUBCUTANEOUSLY ONCE A 2 WEEK AS DIRECTED.     ?
     Route: 058
     Dates: start: 202205

REACTIONS (2)
  - COVID-19 [None]
  - Therapy interrupted [None]
